FAERS Safety Report 5472599-8 (Version None)
Quarter: 2007Q4

REPORT INFORMATION
  Report Type: 
  Country: None (occurrence: None)
  Receive Date: 20071001
  Receipt Date: 20070330
  Transmission Date: 20080405
  Serious: Yes (Other)
  Sender: FDA-Public Use
  Company Number: US-ASTRAZENECA-2006UW12477

PATIENT
  Age: 57 Year
  Sex: Female
  Weight: 74.8 kg

DRUGS (14)
  1. ARIMIDEX [Suspect]
     Indication: BREAST CANCER
     Route: 048
     Dates: start: 20060515
  2. KEPPRA [Suspect]
     Indication: NEUROPATHY
     Route: 048
     Dates: start: 20040101
  3. KEPPRA [Suspect]
     Indication: NEUROPATHY PERIPHERAL
     Route: 048
     Dates: start: 20040101
  4. SYNTHROID [Concomitant]
     Route: 048
     Dates: start: 19950101
  5. FOSAMAX [Concomitant]
     Route: 048
     Dates: start: 20010101
  6. ZYRTEC [Concomitant]
  7. MULTI-VITAMIN [Concomitant]
  8. CALCIUM [Concomitant]
  9. IGG PURISSIMUS [Concomitant]
     Route: 042
     Dates: start: 20040101
  10. ULTRACET [Concomitant]
  11. FLUORIDEX TOOTHPASTE [Concomitant]
     Route: 048
  12. NASONEX [Concomitant]
     Route: 045
  13. TRAMADOL HCL [Concomitant]
     Route: 048
  14. LIDODERM [Concomitant]
     Route: 061

REACTIONS (16)
  - ANXIETY [None]
  - BONE DENSITY DECREASED [None]
  - BONE PAIN [None]
  - COUGH [None]
  - DEPRESSION [None]
  - DERMATITIS ACNEIFORM [None]
  - HYPERHIDROSIS [None]
  - INSOMNIA [None]
  - IRRITABILITY [None]
  - LIVER FUNCTION TEST ABNORMAL [None]
  - LOW DENSITY LIPOPROTEIN INCREASED [None]
  - LOWER LIMB FRACTURE [None]
  - MOOD SWINGS [None]
  - OEDEMA [None]
  - RED BLOOD CELL COUNT DECREASED [None]
  - WHITE BLOOD CELL COUNT DECREASED [None]
